FAERS Safety Report 6268380-2 (Version None)
Quarter: 2009Q3

REPORT INFORMATION
  Report Type: 
  Country: None (occurrence: None)
  Receive Date: 20090715
  Receipt Date: 20090701
  Transmission Date: 20100115
  Serious: Yes (Hospitalization)
  Sender: FDA-Public Use
  Company Number: US-ROCHE-634008

PATIENT
  Sex: Female
  Weight: 58.2 kg

DRUGS (7)
  1. PEG-INTERFERON A-2A (RO 25-8310) [Suspect]
     Indication: HEPATITIS C
     Route: 058
     Dates: start: 20080524
  2. RIBAVIRIN [Suspect]
     Indication: HEPATITIS C
     Route: 048
     Dates: start: 20080524
  3. NEORAL [Concomitant]
     Indication: IMMUNOSUPPRESSION
     Dosage: DOSE: 75 MG/50 MG ; FREQUENCY: QD
     Route: 048
  4. DILTIAZEM [Concomitant]
     Indication: HYPERTENSION
     Dosage: DRUG REPORTED: DILTIAZEM XL
     Route: 048
  5. GABAPENTIN [Concomitant]
     Route: 048
  6. OMEPRAZOLE [Concomitant]
     Route: 048
  7. METFORMIN HCL [Concomitant]
     Indication: DIABETES MELLITUS
     Route: 048

REACTIONS (4)
  - ANAEMIA [None]
  - DYSGEUSIA [None]
  - HERNIA [None]
  - PNEUMONIA [None]
